FAERS Safety Report 5406843-X (Version None)
Quarter: 2007Q3

REPORT INFORMATION
  Report Type: 
  Country: None (occurrence: None)
  Receive Date: 20070807
  Receipt Date: 20070727
  Transmission Date: 20080115
  Serious: Yes (Other)
  Sender: FDA-Public Use
  Company Number: US-JNJFOC-20070706843

PATIENT
  Sex: Male
  Weight: 127.01 kg

DRUGS (6)
  1. REMICADE [Suspect]
     Indication: WEGENER'S GRANULOMATOSIS
     Route: 042
  2. TOPROL-XL [Concomitant]
     Indication: BLOOD PRESSURE
  3. LISINOPRIL [Concomitant]
     Indication: BLOOD PRESSURE
  4. FOLIC ACID [Concomitant]
  5. MTX [Concomitant]
     Indication: WEGENER'S GRANULOMATOSIS
  6. PREDNISONE TAB [Concomitant]
     Indication: WEGENER'S GRANULOMATOSIS

REACTIONS (1)
  - WEGENER'S GRANULOMATOSIS [None]
